FAERS Safety Report 6821396-7 (Version None)
Quarter: 2010Q3

REPORT INFORMATION
  Report Type: 
  Country: None (occurrence: None)
  Receive Date: 20100707
  Receipt Date: 20081021
  Transmission Date: 20110219
  Serious: No
  Sender: FDA-Public Use
  Company Number: US-PFIZER INC-2008089476

PATIENT
  Sex: Male
  Weight: 57.727 kg

DRUGS (2)
  1. ZOLOFT [Suspect]
     Indication: DEPRESSION
     Dates: start: 20060501
  2. NADOLOL [Concomitant]
     Indication: PALPITATIONS

REACTIONS (3)
  - BLOOD CHOLESTEROL INCREASED [None]
  - DIZZINESS [None]
  - VISUAL IMPAIRMENT [None]
